FAERS Safety Report 8616993-2 (Version None)
Quarter: 2012Q3

REPORT INFORMATION
  Report Type: 
  Country: None (occurrence: None)
  Receive Date: 20120823
  Receipt Date: 20120814
  Transmission Date: 20120928
  Serious: Yes (Hospitalization, Other)
  Sender: FDA-Public Use
  Company Number: US-ASTRAZENECA-2012SE49068

PATIENT
  Age: 55 Year
  Sex: Female

DRUGS (2)
  1. NEXIUM [Suspect]
     Route: 048
  2. PREDNISONE TAB [Suspect]
     Route: 065

REACTIONS (4)
  - DYSGRAPHIA [None]
  - VASCULITIS CEREBRAL [None]
  - FATIGUE [None]
  - CEREBROVASCULAR ACCIDENT [None]
